FAERS Safety Report 19313879 (Version 1)
Quarter: 2021Q2

REPORT INFORMATION
  Report Type: Spontaneous
  Country: CA (occurrence: CA)
  Receive Date: 20210527
  Receipt Date: 20210527
  Transmission Date: 20210717
  Serious: Yes (Hospitalization)
  Sender: FDA-Public Use
  Company Number: CA-JNJFOC-20210541372

PATIENT
  Age: 27 Year
  Sex: Male
  Weight: 71 kg

DRUGS (3)
  1. INVEGA SUSTENNA [Suspect]
     Active Substance: PALIPERIDONE PALMITATE
     Indication: PRODUCT USED FOR UNKNOWN INDICATION
     Route: 042
  2. INVEGA SUSTENNA [Suspect]
     Active Substance: PALIPERIDONE PALMITATE
  3. INVEGA SUSTENNA [Suspect]
     Active Substance: PALIPERIDONE PALMITATE

REACTIONS (10)
  - Speech disorder [Unknown]
  - Weight decreased [Unknown]
  - Nasal congestion [Unknown]
  - Rash [Unknown]
  - Lip exfoliation [Unknown]
  - Hepatic function abnormal [Unknown]
  - Dyskinesia [Unknown]
  - Heart rate decreased [Unknown]
  - Dry mouth [Unknown]
  - Lip swelling [Unknown]
